FAERS Safety Report 9441673 (Version 2)
Quarter: 2013Q3

REPORT INFORMATION
  Report Type: Spontaneous
  Country: US (occurrence: US)
  Receive Date: 20130806
  Receipt Date: 20130902
  Transmission Date: 20140515
  Serious: Yes (Death)
  Sender: FDA-Public Use
  Company Number: US-BIOGENIDEC-2013BI070096

PATIENT
  Age: 39 Year
  Sex: Female

DRUGS (9)
  1. TYSABRI [Suspect]
     Indication: MULTIPLE SCLEROSIS
     Route: 042
     Dates: start: 20070918, end: 20110225
  2. TYSABRI [Suspect]
     Indication: MULTIPLE SCLEROSIS
     Route: 042
     Dates: start: 20110922, end: 20130627
  3. DESEROL [Concomitant]
  4. KLONOPIN [Concomitant]
  5. LAMOTRIGINE [Concomitant]
  6. LEVETIRACETAM [Concomitant]
  7. LYRICA [Concomitant]
  8. ZOLOFT [Concomitant]
  9. NORCO [Concomitant]

REACTIONS (1)
  - Sudden unexplained death in epilepsy [Fatal]
